FAERS Safety Report 10968696 (Version 2)
Quarter: 2015Q2

REPORT INFORMATION
  Report Type: Spontaneous
  Country: PL (occurrence: PL)
  Receive Date: 20150330
  Receipt Date: 20150412
  Transmission Date: 20150821
  Serious: Yes (Other)
  Sender: FDA-Public Use
  Company Number: PL-009507513-1503POL013230

PATIENT
  Age: 27 Year
  Sex: Female
  Weight: 68 kg

DRUGS (1)
  1. IMPLANON [Suspect]
     Active Substance: ETONOGESTREL
     Indication: CONTRACEPTION
     Dosage: UNK
     Route: 058
     Dates: start: 20150126, end: 20150323

REACTIONS (8)
  - Haemorrhage [Recovered/Resolved]
  - Affective disorder [Recovered/Resolved]
  - Daydreaming [Recovered/Resolved]
  - Suicidal ideation [Recovered/Resolved]
  - Metrorrhagia [Recovered/Resolved]
  - Suicide attempt [Recovered/Resolved]
  - Depression [Recovered/Resolved]
  - Affect lability [Recovered/Resolved]

NARRATIVE: CASE EVENT DATE: 201502
